FAERS Safety Report 5813957-9 (Version None)
Quarter: 2008Q3

REPORT INFORMATION
  Report Type: 
  Country: None (occurrence: None)
  Receive Date: 20080717
  Receipt Date: 20080710
  Transmission Date: 20090109
  Serious: Yes (Hospitalization)
  Sender: FDA-Public Use
  Company Number: DE-ABBOTT-08P-062-0461689-00

PATIENT
  Sex: Male
  Weight: 68.5 kg

DRUGS (2)
  1. KALETRA [Suspect]
     Indication: HIV INFECTION
     Dosage: 800/200MG
     Route: 048
     Dates: start: 20071225
  2. EMTRICITABINE [Suspect]
     Indication: HIV INFECTION
     Dosage: 245/200 MG
     Route: 048
     Dates: start: 20071225

REACTIONS (1)
  - NON-HODGKIN'S LYMPHOMA STAGE I [None]
